FAERS Safety Report 10006350 (Version 2)
Quarter: 2014Q2

REPORT INFORMATION
  Report Type: Spontaneous
  Country: US (occurrence: US)
  Receive Date: 20140313
  Receipt Date: 20140423
  Transmission Date: 20141212
  Serious: No
  Sender: FDA-Public Use
  Company Number: US-B.I. PHARMACEUTICALS,INC./RIDGEFIELD-2014-BI-09321BP

PATIENT
  Age: 70 Year
  Sex: Female

DRUGS (1)
  1. SPIRIVA [Suspect]
     Indication: PRODUCT USED FOR UNKNOWN INDICATION
     Dosage: 18 MG
     Route: 055
     Dates: start: 2011

REACTIONS (3)
  - Dyspnoea [Unknown]
  - Product quality issue [Unknown]
  - Product quality issue [Unknown]
